FAERS Safety Report 10074697 (Version 2)
Quarter: 2014Q2

REPORT INFORMATION
  Report Type: Spontaneous
  Country: AU (occurrence: AU)
  Receive Date: 20140414
  Receipt Date: 20140414
  Transmission Date: 20141212
  Serious: Yes (Hospitalization, Other)
  Sender: FDA-Public Use
  Company Number: AU-AMGEN INC.-AUSSP2014023365

PATIENT
  Age: 85 Year
  Sex: Male

DRUGS (1)
  1. XGEVA [Suspect]
     Indication: HYPERCALCAEMIA OF MALIGNANCY
     Dosage: 120 MG, UNK
     Route: 065
     Dates: start: 20140326

REACTIONS (2)
  - Hypocalcaemia [Recovered/Resolved]
  - Tetany [Recovered/Resolved]
